FAERS Safety Report 10999068 (Version 5)
Quarter: 2015Q2

REPORT INFORMATION
  Report Type: Spontaneous
  Country: US (occurrence: US)
  Receive Date: 20150408
  Receipt Date: 20150626
  Transmission Date: 20150821
  Serious: Yes (Hospitalization)
  Sender: FDA-Public Use
  Company Number: US-BAYER-2015-099520

PATIENT
  Age: 53 Year
  Sex: Female

DRUGS (2)
  1. MIRENA [Suspect]
     Active Substance: LEVONORGESTREL
     Dosage: 20 MCG/24HR, CONT
     Route: 015
     Dates: start: 201002, end: 20131210
  2. MIRENA [Suspect]
     Active Substance: LEVONORGESTREL
     Dosage: 20 MCG/24HR, CONT
     Route: 015
     Dates: start: 200502, end: 20100208

REACTIONS (7)
  - Complication of device removal [None]
  - Device difficult to use [None]
  - Medical device discomfort [None]
  - Uterine perforation [None]
  - Injury [None]
  - Device breakage [None]
  - Pain [None]

NARRATIVE: CASE EVENT DATE: 20131106
